FAERS Safety Report 24985338 (Version 1)
Quarter: 2025Q1

REPORT INFORMATION
  Report Type: Spontaneous
  Country: IN (occurrence: IN)
  Receive Date: 20250219
  Receipt Date: 20250219
  Transmission Date: 20250409
  Serious: Yes (Other)
  Sender: AMGEN
  Company Number: IN-AMGEN-INDSP2025029950

PATIENT

DRUGS (3)
  1. PROLIA [Suspect]
     Active Substance: DENOSUMAB
     Indication: Osteoporosis postmenopausal
     Dosage: 60 MILLIGRAM, Q6MO
     Route: 058
  2. VITAMIN D3 [Concomitant]
     Active Substance: CHOLECALCIFEROL
     Route: 065
  3. CALCIUM [Concomitant]
     Active Substance: CALCIUM
     Dosage: 1000 MILLIGRAM, QD
     Route: 065

REACTIONS (13)
  - Parkinson^s disease [Unknown]
  - Upper respiratory tract infection [Unknown]
  - Trigger finger [Unknown]
  - Iron deficiency anaemia [Unknown]
  - Arthralgia [Unknown]
  - Gastritis [Unknown]
  - Abdominal pain lower [Unknown]
  - Diarrhoea [Unknown]
  - Toothache [Unknown]
  - Pyrexia [Unknown]
  - Dehydration [Unknown]
  - Back pain [Unknown]
  - Headache [Unknown]
